FAERS Safety Report 13333663 (Version 1)
Quarter: 2017Q1

REPORT INFORMATION
  Report Type: Spontaneous
  Country: GB (occurrence: GB)
  Receive Date: 20170314
  Receipt Date: 20170314
  Transmission Date: 20170428
  Serious: Yes (Other)
  Sender: FDA-Public Use
  Company Number: GB-TEVA-748205ACC

PATIENT
  Age: 60 Year
  Sex: Female
  Weight: 63.5 kg

DRUGS (5)
  1. BROWN + BURK SIMVASTATIN [Interacting]
     Active Substance: SIMVASTATIN
     Indication: BLOOD CHOLESTEROL INCREASED
     Route: 048
     Dates: start: 20170217, end: 20170220
  2. AMLODIPINE [Suspect]
     Active Substance: AMLODIPINE BESYLATE
     Route: 048
     Dates: start: 20160601
  3. AMLODIPINE [Interacting]
     Active Substance: AMLODIPINE BESYLATE
  4. BROWN + BURK SIMVASTATIN [Interacting]
     Active Substance: SIMVASTATIN
     Indication: BLOOD CHOLESTEROL INCREASED
  5. BROWN + BURK SIMVASTATIN [Interacting]
     Active Substance: SIMVASTATIN
     Indication: BLOOD CHOLESTEROL INCREASED
     Route: 048
     Dates: start: 20170117, end: 20170120

REACTIONS (8)
  - Product substitution issue [Unknown]
  - Renal pain [Not Recovered/Not Resolved]
  - Hypersensitivity vasculitis [Not Recovered/Not Resolved]
  - Discomfort [None]
  - Drug interaction [Unknown]
  - Renal disorder [None]
  - Product substitution issue [None]
  - Papule [Not Recovered/Not Resolved]

NARRATIVE: CASE EVENT DATE: 20170118
